FAERS Safety Report 25796339 (Version 1)
Quarter: 2025Q3

REPORT INFORMATION
  Report Type: Spontaneous
  Country: US (occurrence: None)
  Receive Date: 20250912
  Receipt Date: 20250912
  Transmission Date: 20251020
  Serious: Yes (Death)
  Sender: FDA-CTU
  Company Number: None

PATIENT
  Age: 83 Year
  Sex: Male

DRUGS (1)
  1. AMPHOTERICIN B [Suspect]
     Active Substance: AMPHOTERICIN B
     Indication: Fungal infection
     Route: 042

REACTIONS (8)
  - Screaming [None]
  - Anal incontinence [None]
  - Cardio-respiratory arrest [None]
  - Product preparation error [None]
  - Wrong technique in product usage process [None]
  - Drug monitoring procedure incorrectly performed [None]
  - Accidental overdose [None]
  - Loss of consciousness [None]

NARRATIVE: CASE EVENT DATE: 20250907
